FAERS Safety Report 10555089 (Version 2)
Quarter: 2015Q1

REPORT INFORMATION
  Report Type: Spontaneous
  Country: FR (occurrence: FR)
  Receive Date: 20141030
  Receipt Date: 20150113
  Transmission Date: 20150720
  Serious: Yes (Death, Life-Threatening, Hospitalization, Other)
  Sender: FDA-Public Use
  Company Number: FR-PFIZER INC-2014294269

PATIENT
  Age: 80 Year
  Sex: Female

DRUGS (12)
  1. LORAZEPAM. [Suspect]
     Active Substance: LORAZEPAM
     Dosage: 0.5 MG, DAILY
     Route: 048
  2. EFFERALGAN [Suspect]
     Active Substance: ACETAMINOPHEN
     Dosage: 3 TO 4 DOSAGE FORMS, DAILY
     Route: 048
  3. CREON [Suspect]
     Active Substance: PANCRELIPASE AMYLASE\PANCRELIPASE LIPASE\PANCRELIPASE PROTEASE
     Indication: PANCREATITIS
     Dosage: 3 DF, 3X/DAY
     Route: 048
  4. BISOCE [Suspect]
     Active Substance: BISOPROLOL
     Indication: HYPERTENSION
     Dosage: 2.5 MG, DAILY
     Route: 048
  5. DUOPLAVIN [Suspect]
     Active Substance: ASPIRIN\CLOPIDOGREL
     Indication: ACUTE CORONARY SYNDROME
     Dosage: 75 MG, DAILY
     Route: 048
  6. NEO-MERCAZOLE [Suspect]
     Active Substance: CARBIMAZOLE
     Indication: HYPERTHYROIDISM
     Dosage: 5 MG, DAILY
     Route: 048
  7. TAHOR [Suspect]
     Active Substance: ATORVASTATIN CALCIUM
     Indication: HYPERCHOLESTEROLAEMIA
     Dosage: 40 MG, DAILY
     Route: 048
  8. TRIATEC [Suspect]
     Active Substance: RAMIPRIL
     Dosage: 2 DF, DAILY
     Route: 048
  9. LASILIX [Suspect]
     Active Substance: FUROSEMIDE
     Indication: HYPERTENSION
     Dosage: 40 MG, DAILY
     Route: 048
  10. TRIATEC [Suspect]
     Active Substance: RAMIPRIL
     Indication: HYPERTENSION
     Dosage: 2.5 MG, 2X/DAY
     Route: 048
  11. METFORMIN HCL [Suspect]
     Active Substance: METFORMIN HYDROCHLORIDE
     Indication: TYPE 2 DIABETES MELLITUS
     Dosage: 850 MG, 3X/DAY
     Route: 048
     Dates: start: 1996
  12. ESOMEPRAZOLE [Suspect]
     Active Substance: ESOMEPRAZOLE
     Dosage: 40 MG, 1X/DAY
     Route: 048

REACTIONS (11)
  - Overdose [Fatal]
  - Acute kidney injury [Fatal]
  - Hyperkalaemia [Fatal]
  - Gastrointestinal motility disorder [Unknown]
  - Cardiac failure [Fatal]
  - Diarrhoea [Unknown]
  - Lactic acidosis [Fatal]
  - Tachycardia [Unknown]
  - Hepatic failure [Fatal]
  - Abdominal pain [Unknown]
  - Vomiting [Unknown]

NARRATIVE: CASE EVENT DATE: 20140930
